FAERS Safety Report 23395615 (Version 1)
Quarter: 2024Q1

REPORT INFORMATION
  Report Type: Report from Study
  Country: US (occurrence: US)
  Receive Date: 20240112
  Receipt Date: 20240112
  Transmission Date: 20240410
  Serious: Yes (Other)
  Sender: FDA-Public Use
  Company Number: US-ABBVIE-5582557

PATIENT
  Sex: Female

DRUGS (1)
  1. RINVOQ [Suspect]
     Active Substance: UPADACITINIB
     Indication: Psoriatic arthropathy
     Dosage: ER, FORM STRENGTH: 15 MILLIGRAM, ONCE DAILY
     Route: 048
     Dates: start: 202309, end: 202311

REACTIONS (13)
  - Medical procedure [Unknown]
  - Fall [Unknown]
  - Gait disturbance [Recovering/Resolving]
  - Arthralgia [Recovering/Resolving]
  - Paraesthesia [Recovering/Resolving]
  - Arthritis [Not Recovered/Not Resolved]
  - Musculoskeletal stiffness [Unknown]
  - Prolapse [Recovered/Resolved]
  - Cystocele [Recovered/Resolved]
  - Rectocele [Recovered/Resolved]
  - Balance disorder [Recovered/Resolved]
  - Joint stiffness [Recovering/Resolving]
  - Pain [Unknown]

NARRATIVE: CASE EVENT DATE: 20230101
